FAERS Safety Report 8554981-5 (Version None)
Quarter: 2012Q3

REPORT INFORMATION
  Report Type: 
  Country: None (occurrence: None)
  Receive Date: 20120731
  Receipt Date: 20120725
  Transmission Date: 20120928
  Serious: Yes (Hospitalization)
  Sender: FDA-Public Use
  Company Number: CA-B.I. PHARMACEUTICALS,INC./RIDGEFIELD-2012-CN-01618CN

PATIENT
  Age: 8 Decade
  Sex: Male

DRUGS (3)
  1. PRADAXA [Suspect]
     Indication: ATRIAL FIBRILLATION
  2. PLAVIX [Concomitant]
     Indication: ACUTE CORONARY SYNDROME
  3. ASPIRIN [Concomitant]
     Indication: ACUTE CORONARY SYNDROME

REACTIONS (2)
  - HAEMORRHAGE [None]
  - POLYP [None]
